FAERS Safety Report 7650416-5 (Version None)
Quarter: 2011Q3

REPORT INFORMATION
  Report Type: 
  Country: None (occurrence: None)
  Receive Date: 20110802
  Receipt Date: 20110714
  Transmission Date: 20111222
  Serious: Yes (Hospitalization)
  Sender: FDA-Public Use
  Company Number: US-GLAXOSMITHKLINE-A0869269A

PATIENT
  Sex: Male

DRUGS (6)
  1. LISINOPRIL [Concomitant]
  2. AVANDIA [Suspect]
     Indication: DIABETES MELLITUS
     Dosage: 8MG PER DAY
     Route: 048
     Dates: start: 20030301, end: 20070201
  3. INSULIN [Concomitant]
  4. METFORMIN HCL [Concomitant]
  5. RABEPRAZOLE SODIUM [Concomitant]
  6. SIMVASTATIN [Concomitant]

REACTIONS (3)
  - CORONARY ARTERY DISEASE [None]
  - CARDIAC OPERATION [None]
  - ABDOMINAL PAIN UPPER [None]
